FAERS Safety Report 24829809 (Version 1)
Quarter: 2025Q1

REPORT INFORMATION
  Report Type: Spontaneous
  Country: PT (occurrence: PT)
  Receive Date: 20250110
  Receipt Date: 20250110
  Transmission Date: 20250409
  Serious: Yes (Other)
  Sender: VIIV
  Company Number: PT-ViiV Healthcare-PT2025GSK001372

PATIENT

DRUGS (9)
  1. LAMIVUDINE [Suspect]
     Active Substance: LAMIVUDINE
     Indication: HIV infection
  2. TENOFOVIR DISOPROXIL FUMARATE [Suspect]
     Active Substance: TENOFOVIR DISOPROXIL FUMARATE
     Indication: HIV infection
  3. DOLUTEGRAVIR [Suspect]
     Active Substance: DOLUTEGRAVIR
     Indication: HIV infection
  4. ZIDOVUDINE [Suspect]
     Active Substance: ZIDOVUDINE
     Indication: HIV infection
  5. DIDANOSINE [Suspect]
     Active Substance: DIDANOSINE
     Indication: HIV infection
  6. DORAVIRINE [Suspect]
     Active Substance: DORAVIRINE
     Indication: HIV infection
  7. LOPINAVIR [Suspect]
     Active Substance: LOPINAVIR
     Indication: HIV infection
  8. RITONAVIR [Suspect]
     Active Substance: RITONAVIR
     Indication: HIV infection
  9. RALTEGRAVIR [Suspect]
     Active Substance: RALTEGRAVIR
     Indication: HIV infection

REACTIONS (5)
  - Eyelid ptosis [Not Recovered/Not Resolved]
  - Strabismus [Not Recovered/Not Resolved]
  - Lipodystrophy acquired [Not Recovered/Not Resolved]
  - Floppy eyelid syndrome [Not Recovered/Not Resolved]
  - Diplopia [Not Recovered/Not Resolved]
